FAERS Safety Report 6335665-0 (Version None)
Quarter: 2009Q3

REPORT INFORMATION
  Report Type: 
  Country: None (occurrence: None)
  Receive Date: 20090831
  Receipt Date: 20090821
  Transmission Date: 20100115
  Serious: Yes (Other)
  Sender: FDA-Public Use
  Company Number: AU-GENENTECH-289264

PATIENT
  Sex: Female

DRUGS (5)
  1. HERCEPTIN [Suspect]
     Indication: BREAST CANCER
     Dosage: UNK
     Route: 065
     Dates: start: 20020101
  2. NAVELBINE [Concomitant]
     Indication: DRUG USE FOR UNKNOWN INDICATION
     Dosage: UNK
  3. FLUOROURACIL [Concomitant]
     Indication: DRUG USE FOR UNKNOWN INDICATION
     Dosage: UNK
  4. FOLINIC ACID [Concomitant]
     Indication: DRUG USE FOR UNKNOWN INDICATION
     Dosage: UNK
  5. OXALIPLATIN [Concomitant]
     Indication: DRUG USE FOR UNKNOWN INDICATION
     Dosage: UNK

REACTIONS (3)
  - COLORECTAL CANCER [None]
  - DISEASE PROGRESSION [None]
  - NEUTROPHIL COUNT DECREASED [None]
